FAERS Safety Report 8611904 (Version 3)
Quarter: 2012Q4

REPORT INFORMATION
  Report Type: 
  Country: DE (occurrence: DE)
  Receive Date: 20120613
  Receipt Date: 20120906
  Transmission Date: 20130627
  Serious: Yes (Other)
  Sender: FDA-Public Use
  Company Number: PHHY2012DE049312

PATIENT
  Age: 17 Year
  Sex: Female
  Weight: 52 kg

DRUGS (5)
  1. DESFERAL [Suspect]
     Indication: THALASSAEMIA BETA
     Dosage: 2.5(unspecified unit) On monday-thursday
     Route: 058
     Dates: start: 1998
  2. EUTHYROX [Concomitant]
     Indication: SECONDARY HYPOTHYROIDISM
     Dosage: 125 ug, QD
     Route: 048
  3. CAPTOPRIL [Concomitant]
     Indication: CARDIOMYOPATHY
     Dosage: 6.25 mg, TID
     Route: 048
  4. ISOCILLIN [Concomitant]
     Indication: SPLENECTOMY
     Dosage: 1.25 Mega U
  5. CONTRACEPTIVES NOS [Concomitant]
     Dosage: UNK UKN, UNK

REACTIONS (3)
  - Electrocardiogram QT prolonged [Unknown]
  - Cardiomyopathy [Unknown]
  - Secondary hypothyroidism [Unknown]
